FAERS Safety Report 5376982-0 (Version None)
Quarter: 2007Q3

REPORT INFORMATION
  Report Type: 
  Country: None (occurrence: None)
  Receive Date: 20070703
  Receipt Date: 20070622
  Transmission Date: 20080115
  Serious: Yes (Hospitalization)
  Sender: FDA-Public Use
  Company Number: US-JNJFOC-20070606180

PATIENT
  Sex: Female
  Weight: 86.18 kg

DRUGS (20)
  1. DURAGESIC-100 [Suspect]
     Indication: PAIN
     Route: 062
  2. XANAX [Concomitant]
     Indication: ANXIETY
     Route: 048
  3. SINGULAIR [Concomitant]
     Indication: ASTHMA
     Route: 048
  4. ZOCOR [Concomitant]
     Route: 048
  5. SKELAXIN [Concomitant]
     Indication: MUSCLE RELAXANT THERAPY
     Route: 048
  6. ASPIRIN [Concomitant]
     Route: 048
  7. VITAMIN B-12 [Concomitant]
     Indication: NUTRITIONAL SUPPORT
     Route: 048
  8. VITAMIN E [Concomitant]
     Indication: NUTRITIONAL SUPPORT
     Dosage: 400
     Route: 048
  9. MAGNESIUM WITH ZINC SUPPLEMENT [Concomitant]
     Route: 048
  10. FORADIL [Concomitant]
     Indication: ASTHMA
     Route: 055
  11. SPIRIVA [Concomitant]
     Indication: ASTHMA
     Route: 055
  12. CALCIUM WITH VITAMIN D [Concomitant]
     Indication: OSTEOPOROSIS
     Route: 048
  13. K-DUR 10 [Concomitant]
     Indication: MINERAL SUPPLEMENTATION
     Route: 048
  14. LASIX [Concomitant]
     Indication: DIURETIC THERAPY
     Route: 048
  15. CELEBREX [Concomitant]
     Indication: BACK PAIN
     Route: 048
  16. FORTICAL [Concomitant]
     Indication: OSTEOPOROSIS
     Route: 045
  17. SYNTHROID [Concomitant]
     Route: 048
  18. SYNTHROID [Concomitant]
     Indication: THYROID DISORDER
     Route: 048
  19. PROVENTIL-HFA [Concomitant]
     Indication: ASTHMA
     Route: 055
  20. XOPENEX [Concomitant]
     Indication: ASTHMA
     Route: 055

REACTIONS (8)
  - CORONARY ARTERY DISEASE [None]
  - DIZZINESS [None]
  - DYSPNOEA [None]
  - HEPATIC STEATOSIS [None]
  - MALAISE [None]
  - NAUSEA [None]
  - THROAT TIGHTNESS [None]
  - VOMITING [None]
